FAERS Safety Report 8850647 (Version 1)
Quarter: 2012Q4

REPORT INFORMATION
  Report Type: 
  Country: JP (occurrence: JP)
  Receive Date: 20121019
  Receipt Date: 20121019
  Transmission Date: 20130627
  Serious: Yes (Life-Threatening)
  Sender: FDA-Public Use
  Company Number: JP-ASTRAZENECA-2012SE79218

PATIENT

DRUGS (1)
  1. XYLOCAINE POLYAMP [Suspect]
     Dosage: Dose unknown
     Route: 065

REACTIONS (1)
  - Anaphylactic shock [Unknown]
